FAERS Safety Report 4688753-9 (Version None)
Quarter: 2005Q2

REPORT INFORMATION
  Report Type: 
  Country: None (occurrence: None)
  Receive Date: 20050609
  Receipt Date: 20050609
  Transmission Date: 20051028
  Serious: Yes (Hospitalization)
  Sender: FDA-Public Use
  Company Number: None

PATIENT
  Sex: Female
  Weight: 60 kg

DRUGS (1)
  1. BLEOMYCIN [Suspect]
     Indication: HODGKIN'S DISEASE
     Dates: start: 20041201

REACTIONS (2)
  - DYSPNOEA [None]
  - LUNG INFILTRATION [None]
